FAERS Safety Report 8551974-9 (Version None)
Quarter: 2012Q3

REPORT INFORMATION
  Report Type: 
  Country: None (occurrence: None)
  Receive Date: 20120730
  Receipt Date: 20090725
  Transmission Date: 20120928
  Serious: Yes (Death, Other)
  Sender: FDA-Public Use
  Company Number: CO-PFIZER INC-2012181426

PATIENT
  Age: 51 Year
  Sex: Female

DRUGS (7)
  1. METOPROLOL TARTRATE [Concomitant]
     Dosage: 50 MG, 3X/DAY
  2. LIPITOR [Suspect]
     Indication: DYSLIPIDAEMIA
     Dosage: 10 MG, 1X/DAY
  3. OLMESARTAN MEDOXOMIL AND HYDROCHLOROTHIZIDE [Suspect]
     Indication: HYPERTENSION
     Dosage: 20/12.5 MG, 1X/DAY
  4. AMLODIPINE [Concomitant]
     Dosage: 5 MG, 2X/DAY
  5. ACETYLSALICYLIC ACID [Concomitant]
     Dosage: 100 MG, 1X/DAY
  6. LIPITOR [Suspect]
     Dosage: 20 MG, 1X/DAY
  7. LOSARTAN [Concomitant]
     Dosage: 50 MG, 2X/DAY

REACTIONS (4)
  - TOBACCO ABUSE [None]
  - CHEST PAIN [None]
  - SUDDEN CARDIAC DEATH [None]
  - HYPERTENSIVE EMERGENCY [None]
